FAERS Safety Report 5519863-1 (Version None)
Quarter: 2007Q4

REPORT INFORMATION
  Report Type: 
  Country: None (occurrence: None)
  Receive Date: 20071116
  Receipt Date: 20071011
  Transmission Date: 20080405
  Serious: No
  Sender: FDA-Public Use
  Company Number: A0684779A

PATIENT
  Age: 62 Year
  Sex: Female
  Weight: 92.7 kg

DRUGS (1)
  1. COREG CR [Suspect]
     Indication: DRUG USE FOR UNKNOWN INDICATION
     Dosage: 20MG UNKNOWN
     Route: 048
     Dates: start: 20070705, end: 20070828

REACTIONS (5)
  - DIZZINESS [None]
  - DYSPNOEA [None]
  - HEADACHE [None]
  - MALAISE [None]
  - SENSATION OF HEAVINESS [None]
